FAERS Safety Report 7921469-1 (Version None)
Quarter: 2011Q4

REPORT INFORMATION
  Report Type: 
  Country: None (occurrence: None)
  Receive Date: 20111117
  Receipt Date: 20110426
  Transmission Date: 20120403
  Serious: No
  Sender: FDA-Public Use
  Company Number: US-MYLANLABS-2011S1008665

PATIENT
  Sex: Male
  Weight: 72.58 kg

DRUGS (1)
  1. NADOLOL [Suspect]
     Indication: ARRHYTHMIA
     Route: 048

REACTIONS (3)
  - DRUG INEFFECTIVE FOR UNAPPROVED INDICATION [None]
  - DIZZINESS [None]
  - HEART RATE INCREASED [None]
